FAERS Safety Report 7569860-X (Version None)
Quarter: 2011Q2

REPORT INFORMATION
  Report Type: 
  Country: None (occurrence: None)
  Receive Date: 20110622
  Receipt Date: 20110622
  Transmission Date: 20111010
  Serious: Yes (Death)
  Sender: FDA-Public Use
  Company Number: None

PATIENT
  Age: 66 Year
  Sex: Female

DRUGS (7)
  1. ALBUTEROL SULFATE AUTOHALER [Concomitant]
  2. REVLIMID [Suspect]
     Indication: AMYLOIDOSIS
     Dosage: 25MG DAILY ORALLY
     Route: 048
     Dates: start: 20100701
  3. REVLIMID [Suspect]
     Indication: WALDENSTROM'S MACROGLOBULINAEMIA
     Dosage: 25MG DAILY ORALLY
     Route: 048
     Dates: start: 20100701
  4. FUROSEMIDE [Concomitant]
  5. ASMANEX TWISTHALER [Concomitant]
  6. BONIVA [Concomitant]
  7. METOPROLOL TARTRATE [Concomitant]

REACTIONS (3)
  - CLOSTRIDIAL INFECTION [None]
  - ABDOMINAL PAIN [None]
  - DRUG EFFECT DECREASED [None]
